FAERS Safety Report 20107129 (Version 1)
Quarter: 2021Q4

REPORT INFORMATION
  Report Type: Spontaneous
  Country: US (occurrence: US)
  Receive Date: 20211124
  Receipt Date: 20211124
  Transmission Date: 20220304
  Serious: Yes (Death, Hospitalization, Other)
  Sender: FDA-Public Use
  Company Number: US-LUPIN PHARMACEUTICALS INC.-2021-22949

PATIENT
  Age: 88 Year
  Sex: Male

DRUGS (1)
  1. DOXYCYCLINE [Suspect]
     Active Substance: DOXYCYCLINE
     Indication: Abscess limb
     Dosage: UNK
     Route: 065

REACTIONS (2)
  - Post infection glomerulonephritis [Fatal]
  - Uraemic encephalopathy [Fatal]
